FAERS Safety Report 5036755-5 (Version None)
Quarter: 2006Q2

REPORT INFORMATION
  Report Type: 
  Country: None (occurrence: None)
  Receive Date: 20060628
  Receipt Date: 20060619
  Transmission Date: 20061013
  Serious: Yes (Other)
  Sender: FDA-Public Use
  Company Number: AU-JNJFOC-20060505909

PATIENT
  Sex: Male
  Weight: 65 kg

DRUGS (3)
  1. NIZORAL [Suspect]
     Indication: FUNGAL INFECTION
     Route: 048
     Dates: start: 20060516, end: 20060526
  2. LIPEX [Concomitant]
     Route: 065
  3. LIPEX [Concomitant]
     Indication: HYPERLIPIDAEMIA
     Route: 065

REACTIONS (3)
  - FATIGUE [None]
  - PARAESTHESIA [None]
  - VISION BLURRED [None]
